FAERS Safety Report 14178730 (Version 1)
Quarter: 2017Q4

REPORT INFORMATION
  Report Type: Spontaneous
  Country: DE (occurrence: DE)
  Receive Date: 20171110
  Receipt Date: 20171110
  Transmission Date: 20180321
  Serious: Yes (Other)
  Sender: FDA-Public Use
  Company Number: DE-FERRINGPH-2017FE05463

PATIENT

DRUGS (1)
  1. FIRMAGON [Suspect]
     Active Substance: DEGARELIX ACETATE
     Indication: PROSTATE CANCER
     Dosage: 80 MG, MONTHLY
     Route: 058
     Dates: start: 2009

REACTIONS (20)
  - Chills [Unknown]
  - Hot flush [Unknown]
  - Physical disability [Unknown]
  - Nausea [Unknown]
  - Injection site pruritus [Unknown]
  - Abnormal faeces [Unknown]
  - Injection site pain [Unknown]
  - Fall [Unknown]
  - Loss of consciousness [Unknown]
  - Fatigue [Unknown]
  - Pyrexia [Unknown]
  - Arthralgia [Unknown]
  - Weight increased [Unknown]
  - Gynaecomastia [Unknown]
  - Injection site swelling [Unknown]
  - Back pain [Unknown]
  - Dizziness [Unknown]
  - Injection site erythema [Unknown]
  - Hyperhidrosis [Unknown]
  - Bedridden [Recovered/Resolved]

NARRATIVE: CASE EVENT DATE: 2009
